FAERS Safety Report 6183840-0 (Version None)
Quarter: 2009Q2

REPORT INFORMATION
  Report Type: 
  Country: None (occurrence: None)
  Receive Date: 20090508
  Receipt Date: 20090428
  Transmission Date: 20091009
  Serious: No
  Sender: FDA-Public Use
  Company Number: US-AMGEN-QUU318147

PATIENT
  Sex: Female

DRUGS (2)
  1. ENBREL [Suspect]
     Indication: RHEUMATOID ARTHRITIS
     Route: 058
     Dates: start: 20080801, end: 20081106
  2. RADIATION THERAPY [Concomitant]

REACTIONS (3)
  - COUGH [None]
  - INJECTION SITE DISCOMFORT [None]
  - NERVOUSNESS [None]
